FAERS Safety Report 17699668 (Version 1)
Quarter: 2020Q2

REPORT INFORMATION
  Report Type: Spontaneous
  Country: CA (occurrence: CA)
  Receive Date: 20200423
  Receipt Date: 20200423
  Transmission Date: 20200714
  Serious: Yes (Other)
  Sender: FDA-Public Use
  Company Number: CA-TEVA-2020-CA-1226207

PATIENT
  Age: 63 Year
  Sex: Female

DRUGS (32)
  1. ACTEMRA [Concomitant]
     Active Substance: TOCILIZUMAB
  2. IMOVANE [Concomitant]
     Active Substance: ZOPICLONE
     Indication: SLEEP APNOEA SYNDROME
  3. XELJANZ [Concomitant]
     Active Substance: TOFACITINIB CITRATE
     Indication: RHEUMATOID ARTHRITIS
     Dosage: 10 MILLIGRAM DAILY;
     Route: 048
  4. LEFLUNOMIDE. [Suspect]
     Active Substance: LEFLUNOMIDE
     Indication: PRODUCT USED FOR UNKNOWN INDICATION
     Route: 065
  5. ATENOLOL. [Concomitant]
     Active Substance: ATENOLOL
     Indication: BLOOD PRESSURE MEASUREMENT
  6. HYDROXYCHLOROQUINE SULFATE. [Concomitant]
     Active Substance: HYDROXYCHLOROQUINE SULFATE
  7. PREDNISONE. [Concomitant]
     Active Substance: PREDNISONE
  8. ORENCIA [Concomitant]
     Active Substance: ABATACEPT
  9. METHOTREXATE. [Concomitant]
     Active Substance: METHOTREXATE
     Route: 058
  10. HUMIRA [Concomitant]
     Active Substance: ADALIMUMAB
  11. PROPYLENE GLYCOL [Concomitant]
     Active Substance: PROPYLENE GLYCOL
  12. VEDOLIZUMAB [Concomitant]
     Active Substance: VEDOLIZUMAB
  13. GRAVOL [Concomitant]
     Active Substance: DIMENHYDRINATE
     Indication: NAUSEA
  14. EZETROL [Concomitant]
     Active Substance: EZETIMIBE
  15. LYRICA [Concomitant]
     Active Substance: PREGABALIN
  16. PREMARIN [Concomitant]
     Active Substance: ESTROGENS, CONJUGATED
     Indication: DRY EYE
  17. VENLAFAXINE HYDROCHLORIDE. [Concomitant]
     Active Substance: VENLAFAXINE HYDROCHLORIDE
  18. ENBREL [Suspect]
     Active Substance: ETANERCEPT
     Indication: PRODUCT USED FOR UNKNOWN INDICATION
     Route: 065
  19. ENBREL [Suspect]
     Active Substance: ETANERCEPT
     Route: 065
  20. ATENOLOL. [Concomitant]
     Active Substance: ATENOLOL
  21. CELEBREX [Concomitant]
     Active Substance: CELECOXIB
  22. CYCLOBENZAPRINE. [Concomitant]
     Active Substance: CYCLOBENZAPRINE
     Indication: MYALGIA
  23. LIPITOR [Concomitant]
     Active Substance: ATORVASTATIN CALCIUM
  24. ISONIAZID. [Concomitant]
     Active Substance: ISONIAZID
     Indication: TUBERCULOSIS
  25. IMOVANE [Concomitant]
     Active Substance: ZOPICLONE
  26. HYALURONATE SODIUM/MUCOPOLYSACCHARIDES [Concomitant]
  27. SULFASALAZINE. [Concomitant]
     Active Substance: SULFASALAZINE
  28. ALLOPURINOL. [Concomitant]
     Active Substance: ALLOPURINOL
  29. FOLIC ACID. [Concomitant]
     Active Substance: FOLIC ACID
  30. ESOMEPRAZOLE MAGNESIUM TRIHYDRATE/NAPROXEN [Concomitant]
     Active Substance: ESOMEPRAZOLE MAGNESIUM\NAPROXEN
  31. PANTOPRAZOLE MAGNESIUM [Concomitant]
     Active Substance: PANTOPRAZOLE MAGNESIUM
  32. METHOTREXATE. [Concomitant]
     Active Substance: METHOTREXATE
     Route: 058

REACTIONS (13)
  - Hypercholesterolaemia [Not Recovered/Not Resolved]
  - Musculoskeletal stiffness [Not Recovered/Not Resolved]
  - Osteoarthritis [Not Recovered/Not Resolved]
  - Arthralgia [Not Recovered/Not Resolved]
  - Herpes zoster [Not Recovered/Not Resolved]
  - Hypertension [Not Recovered/Not Resolved]
  - Upper respiratory tract infection [Not Recovered/Not Resolved]
  - Migraine [Not Recovered/Not Resolved]
  - Therapeutic product effect decreased [Not Recovered/Not Resolved]
  - Joint swelling [Not Recovered/Not Resolved]
  - Bronchitis [Not Recovered/Not Resolved]
  - Tooth abscess [Not Recovered/Not Resolved]
  - Pain in extremity [Not Recovered/Not Resolved]
